FAERS Safety Report 7228218-3 (Version None)
Quarter: 2011Q1

REPORT INFORMATION
  Report Type: 
  Country: None (occurrence: None)
  Receive Date: 20110114
  Receipt Date: 20110107
  Transmission Date: 20110831
  Serious: Yes (Other)
  Sender: FDA-Public Use
  Company Number: JP-ASTRAZENECA-2011SE02153

PATIENT
  Age: 55 Year
  Sex: Male
  Weight: 99 kg

DRUGS (1)
  1. AMIAS [Suspect]
     Indication: HYPERTENSION
     Route: 048
     Dates: start: 20100601

REACTIONS (2)
  - BREAST PAIN [None]
  - BREAST MASS [None]
